FAERS Safety Report 21670644 (Version 1)
Quarter: 2022Q4

REPORT INFORMATION
  Report Type: Spontaneous
  Country: US (occurrence: None)
  Receive Date: 20221202
  Receipt Date: 20221202
  Transmission Date: 20230112
  Serious: No
  Sender: FDA-Public Use
  Company Number: 2022A392657

PATIENT

DRUGS (1)
  1. PRILOSEC [Suspect]
     Active Substance: OMEPRAZOLE MAGNESIUM
     Dosage: 1 TABLET, DAILY
     Route: 048
     Dates: start: 2008

REACTIONS (3)
  - Abdominal discomfort [Unknown]
  - Incorrect product administration duration [Unknown]
  - Inappropriate schedule of product administration [Unknown]

NARRATIVE: CASE EVENT DATE: 20080101
